FAERS Safety Report 17291497 (Version 1)
Quarter: 2020Q1

REPORT INFORMATION
  Report Type: Spontaneous
  Country: US (occurrence: US)
  Receive Date: 20200117
  Receipt Date: 20200117
  Transmission Date: 20200409
  Serious: No
  Sender: FDA-Public Use
  Company Number: None

PATIENT
  Age: 61 Year
  Sex: Male
  Weight: 80.06 kg

DRUGS (1)
  1. CAPECITABINE. [Suspect]
     Active Substance: CAPECITABINE
     Indication: GALLBLADDER CANCER
     Dosage: ?          OTHER FREQUENCY:3G AM, 2G PM;?
     Route: 048
     Dates: start: 20191227, end: 20200117

REACTIONS (2)
  - Pain [None]
  - Chest discomfort [None]

NARRATIVE: CASE EVENT DATE: 20190117
